FAERS Safety Report 6985952-8 (Version None)
Quarter: 2010Q3

REPORT INFORMATION
  Report Type: 
  Country: None (occurrence: None)
  Receive Date: 20100827
  Receipt Date: 20091111
  Transmission Date: 20110219
  Serious: Yes (Other)
  Sender: FDA-Public Use
  Company Number: AMAG200900048

PATIENT
  Age: 40 Year
  Sex: Male
  Weight: 86.1 kg

DRUGS (8)
  1. FERAHEME [Suspect]
     Indication: IRON DEFICIENCY ANAEMIA
     Dosage: 13 ML, (390 MG), INTRAVENOUS
     Route: 042
     Dates: start: 20091111, end: 20091111
  2. GLIPIZIDE (GLIPIZIDE) [Concomitant]
  3. CARVEDILOL [Concomitant]
  4. DIOVAN [Concomitant]
  5. PHOSLO [Concomitant]
  6. PRAVASTATIN [Concomitant]
  7. FUROSEMIDE (FUROSEMIDE SODIUM) [Concomitant]
  8. AMLODIPINE [Concomitant]

REACTIONS (8)
  - DYSPNOEA [None]
  - FATIGUE [None]
  - HEADACHE [None]
  - NASAL DISCOMFORT [None]
  - PERIORBITAL OEDEMA [None]
  - PHARYNGEAL OEDEMA [None]
  - SNEEZING [None]
  - THROAT IRRITATION [None]
